FAERS Safety Report 24720752 (Version 10)
Quarter: 2025Q3

REPORT INFORMATION
  Report Type: Spontaneous
  Country: US (occurrence: US)
  Receive Date: 20241211
  Receipt Date: 20250813
  Transmission Date: 20251021
  Serious: Yes (Hospitalization, Other)
  Sender: KARYOPHARM THERAPEUTICS
  Company Number: US-KARYOPHARM-2024KPT001859

PATIENT

DRUGS (34)
  1. XPOVIO [Suspect]
     Active Substance: SELINEXOR
     Indication: Plasma cell myeloma
     Route: 048
     Dates: start: 20241202
  2. XPOVIO [Suspect]
     Active Substance: SELINEXOR
     Route: 048
  3. XPOVIO [Suspect]
     Active Substance: SELINEXOR
     Route: 048
     Dates: start: 2025, end: 2025
  4. XPOVIO [Suspect]
     Active Substance: SELINEXOR
     Route: 048
     Dates: start: 2025, end: 2025
  5. XPOVIO [Suspect]
     Active Substance: SELINEXOR
     Dates: start: 2025
  6. ACETAMINOPHEN [Concomitant]
     Active Substance: ACETAMINOPHEN
  7. ACYCLOVIR [Concomitant]
     Active Substance: ACYCLOVIR
  8. ALBUTEROL SULFATE [Concomitant]
     Active Substance: ALBUTEROL SULFATE
  9. ANORO ELLIPTA [Concomitant]
     Active Substance: UMECLIDINIUM BROMIDE\VILANTEROL TRIFENATATE
  10. ATORVASTATIN [Concomitant]
     Active Substance: ATORVASTATIN
  11. AZITHROMYCIN [Concomitant]
     Active Substance: AZITHROMYCIN
  12. BACLOFEN [Concomitant]
     Active Substance: BACLOFEN
  13. BUMETANIDE [Concomitant]
     Active Substance: BUMETANIDE
  14. BUPROPION [Concomitant]
     Active Substance: BUPROPION
  15. DEXAMETHASONE [Concomitant]
     Active Substance: DEXAMETHASONE
  16. METOPROLOL SUCCINATE [Concomitant]
     Active Substance: METOPROLOL SUCCINATE
  17. NINLARO [Concomitant]
     Active Substance: IXAZOMIB CITRATE
  18. PREDNISONE [Concomitant]
     Active Substance: PREDNISONE
  19. PROCHLORPERAZINE MALEATE [Concomitant]
     Active Substance: PROCHLORPERAZINE MALEATE
  20. ROPINIROLE [Concomitant]
     Active Substance: ROPINIROLE
  21. TRAMADOL [Concomitant]
     Active Substance: TRAMADOL
  22. LIDOCAINE AND PRILOCAINE [Concomitant]
     Active Substance: LIDOCAINE\PRILOCAINE
  23. LISINOPRIL [Concomitant]
     Active Substance: LISINOPRIL
  24. ONDANSETRON [Concomitant]
     Active Substance: ONDANSETRON
  25. ALLOPURINOL [Concomitant]
     Active Substance: ALLOPURINOL
  26. ELIQUIS [Concomitant]
     Active Substance: APIXABAN
  27. ACETAMINOPHEN\HYDROCODONE [Concomitant]
     Active Substance: ACETAMINOPHEN\HYDROCODONE
  28. JARDIANCE [Concomitant]
     Active Substance: EMPAGLIFLOZIN
  29. OLANZAPINE [Concomitant]
     Active Substance: OLANZAPINE
  30. OMEPRAZOLE [Concomitant]
     Active Substance: OMEPRAZOLE
  31. SPIRONOLACTONE [Concomitant]
     Active Substance: SPIRONOLACTONE
  32. TRAZODONE [Concomitant]
     Active Substance: TRAZODONE HYDROCHLORIDE
  33. NORCO [Concomitant]
     Active Substance: ACETAMINOPHEN\HYDROCODONE BITARTRATE
  34. TORSEMIDE [Concomitant]
     Active Substance: TORSEMIDE

REACTIONS (13)
  - Hypotension [Unknown]
  - Internal haemorrhage [Unknown]
  - Full blood count abnormal [Unknown]
  - Insomnia [Unknown]
  - Gastroenteritis viral [Not Recovered/Not Resolved]
  - Generalised oedema [Unknown]
  - Illness [Unknown]
  - Gait inability [Unknown]
  - Nausea [Not Recovered/Not Resolved]
  - Diarrhoea [Unknown]
  - Decreased appetite [Not Recovered/Not Resolved]
  - Bronchitis [Unknown]
  - Product dose omission in error [Unknown]

NARRATIVE: CASE EVENT DATE: 20241201
